FAERS Safety Report 12475846 (Version 1)
Quarter: 2016Q2

REPORT INFORMATION
  Report Type: Spontaneous
  Country: GB (occurrence: GB)
  Receive Date: 20160617
  Receipt Date: 20160617
  Transmission Date: 20160815
  Serious: Yes (Death, Other)
  Sender: FDA-Public Use
  Company Number: GB-TEVA-667075ACC

PATIENT
  Age: 64 Year
  Sex: Male

DRUGS (16)
  1. CIPROFLOXACIN. [Concomitant]
     Active Substance: CIPROFLOXACIN
  2. AMITRIPTYLINE [Concomitant]
     Active Substance: AMITRIPTYLINE
  3. AMOXICILLIN AND CLAVULANIC ACID [Concomitant]
     Active Substance: AMOXICILLIN\CLAVULANIC ACID
  4. NOREPINEPHRINE [Concomitant]
     Active Substance: NOREPINEPHRINE\NOREPINEPHRINE BITARTRATE
  5. SIMVASTATIN. [Concomitant]
     Active Substance: SIMVASTATIN
  6. MORPHINE [Concomitant]
     Active Substance: MORPHINE
  7. RANITIDINE. [Concomitant]
     Active Substance: RANITIDINE
  8. ALFENTANIL. [Concomitant]
     Active Substance: ALFENTANIL
  9. CLOPIDOGREL [Concomitant]
     Active Substance: CLOPIDOGREL BISULFATE
  10. HYDROXYCHLOROQUINE [Concomitant]
     Active Substance: HYDROXYCHLOROQUINE
  11. LISINOPRIL. [Concomitant]
     Active Substance: LISINOPRIL
  12. METHOTREXATE [Concomitant]
     Active Substance: METHOTREXATE
  13. PROPOFOL. [Concomitant]
     Active Substance: PROPOFOL
  14. PARACETAMOL [Concomitant]
     Active Substance: ACETAMINOPHEN
  15. DULOXETINE. [Suspect]
     Active Substance: DULOXETINE
     Indication: AFFECTIVE DISORDER
     Route: 048
     Dates: start: 20160417, end: 20160420
  16. HEPARIN [Concomitant]
     Active Substance: HEPARIN SODIUM

REACTIONS (4)
  - Pyrexia [Not Recovered/Not Resolved]
  - Hypertension [Not Recovered/Not Resolved]
  - Blood pressure decreased [Not Recovered/Not Resolved]
  - Serotonin syndrome [Fatal]

NARRATIVE: CASE EVENT DATE: 20160418
